FAERS Safety Report 14536686 (Version 2)
Quarter: 2018Q1

REPORT INFORMATION
  Report Type: Report from Study
  Country: US (occurrence: US)
  Receive Date: 20180215
  Receipt Date: 20180308
  Transmission Date: 20180509
  Serious: Yes (Death, Hospitalization)
  Sender: FDA-Public Use
  Company Number: US-EISAI MEDICAL RESEARCH-EC-2018-036114

PATIENT
  Age: 51 Year
  Sex: Female
  Weight: 69.85 kg

DRUGS (3)
  1. LENVATINIB [Suspect]
     Active Substance: LENVATINIB
     Dosage: UNKNOWN
     Route: 048
     Dates: start: 2018, end: 20180209
  2. ERIBULIN [Suspect]
     Active Substance: ERIBULIN
     Indication: NEOPLASM
     Dosage: UNKNOWN DOSE ON DAYS 1 AND 8 EVERY 21 DAY CYCLE
     Route: 041
     Dates: start: 20180122, end: 20180205
  3. LENVATINIB [Suspect]
     Active Substance: LENVATINIB
     Indication: NEOPLASM
     Dosage: UNKNOWN
     Route: 048
     Dates: start: 20180123, end: 201801

REACTIONS (3)
  - Pyrexia [Fatal]
  - Neutrophil count decreased [Fatal]
  - Sepsis [Fatal]

NARRATIVE: CASE EVENT DATE: 20180209
